FAERS Safety Report 5020615-X (Version None)
Quarter: 2006Q2

REPORT INFORMATION
  Report Type: 
  Country: None (occurrence: None)
  Receive Date: 20060606
  Receipt Date: 20060524
  Transmission Date: 20061013
  Serious: Yes (Death, Hospitalization)
  Sender: FDA-Public Use
  Company Number: 2006BI007630

PATIENT
  Age: 48 Year
  Sex: Female
  Weight: 111.1313 kg

DRUGS (3)
  1. AVONEX [Suspect]
     Indication: MULTIPLE SCLEROSIS
     Dosage: 15 UG; QW; IM;  5 UG; QW; IM;  30 UG; QW; IM
     Route: 030
     Dates: start: 20040702, end: 20040723
  2. AVONEX [Suspect]
     Indication: MULTIPLE SCLEROSIS
     Dosage: 15 UG; QW; IM;  5 UG; QW; IM;  30 UG; QW; IM
     Route: 030
     Dates: start: 20040730, end: 20040820
  3. AVONEX [Suspect]
     Indication: MULTIPLE SCLEROSIS
     Dosage: 15 UG; QW; IM;  5 UG; QW; IM;  30 UG; QW; IM
     Route: 030
     Dates: start: 20040827

REACTIONS (8)
  - APNOEIC ATTACK [None]
  - CARDIAC ARREST [None]
  - DEPRESSION [None]
  - GASTROOESOPHAGEAL REFLUX DISEASE [None]
  - HOMOCYSTINAEMIA [None]
  - HYPERTENSION [None]
  - RESPIRATORY ARREST [None]
  - TREMOR [None]
